FAERS Safety Report 7720153-7 (Version None)
Quarter: 2011Q3

REPORT INFORMATION
  Report Type: 
  Country: None (occurrence: None)
  Receive Date: 20110824
  Receipt Date: 20110809
  Transmission Date: 20111222
  Serious: Yes (Hospitalization)
  Sender: FDA-Public Use
  Company Number: THQ2011A04755

PATIENT
  Age: 86 Year
  Sex: Male

DRUGS (1)
  1. ACTOS [Suspect]
     Indication: DIABETES MELLITUS
     Dosage: 30 MG (1 D) PER ORAL
     Route: 048
     Dates: start: 20060607, end: 20110701

REACTIONS (1)
  - BLADDER CANCER [None]
